FAERS Safety Report 7645269-5 (Version None)
Quarter: 2011Q3

REPORT INFORMATION
  Report Type: 
  Country: None (occurrence: None)
  Receive Date: 20110729
  Receipt Date: 20110722
  Transmission Date: 20111222
  Serious: Yes (Hospitalization)
  Sender: FDA-Public Use
  Company Number: FR-PFIZER INC-2011166785

PATIENT
  Age: 91 Year
  Sex: Female

DRUGS (6)
  1. NEURONTIN [Suspect]
     Indication: CONVULSION PROPHYLAXIS
     Dosage: 300 MG, 2X/DAY
     Route: 048
     Dates: end: 20110424
  2. NEXIUM [Concomitant]
     Dosage: 1 DF, 1X/DAY
     Route: 048
     Dates: start: 20100801
  3. ASPIRIN [Concomitant]
     Dosage: SINGLE DOSE SACHET ONE DOSAGE FORM PER DAY
     Route: 048
     Dates: start: 20080101, end: 20110512
  4. URBANYL [Concomitant]
     Dosage: UNK
     Route: 048
     Dates: end: 20110512
  5. CRESTOR [Concomitant]
     Dosage: UNK
     Route: 048
     Dates: start: 20100801, end: 20110512
  6. NEURONTIN [Suspect]
     Dosage: 600 MG, 2X/DAY
     Dates: start: 20110425, end: 20110512

REACTIONS (2)
  - METABOLIC ACIDOSIS [None]
  - RENAL FAILURE ACUTE [None]
